FAERS Safety Report 8050208-1 (Version None)
Quarter: 2012Q1

REPORT INFORMATION
  Report Type: 
  Country: None (occurrence: None)
  Receive Date: 20120111
  Receipt Date: 20111208
  Transmission Date: 20120608
  Serious: Yes (Death)
  Sender: FDA-Public Use
  Company Number: 1053087-2011-00012

PATIENT
  Age: 44 Year
  Sex: Female
  Weight: 93.8946 kg

DRUGS (1)
  1. SODIUM CITRATE [Suspect]
     Indication: APHERESIS
     Dosage: 1 BAG PER PROCEDURE/IV
     Route: 042
     Dates: start: 20111123

REACTIONS (1)
  - SOMNOLENCE [None]
